FAERS Safety Report 4874018-9 (Version None)
Quarter: 2006Q1

REPORT INFORMATION
  Report Type: 
  Country: None (occurrence: None)
  Receive Date: 20060106
  Receipt Date: 20051212
  Transmission Date: 20060701
  Serious: Yes (Hospitalization, Disabling)
  Sender: FDA-Public Use
  Company Number: JP-SP-2005-02777

PATIENT
  Age: 69 Year
  Sex: Male

DRUGS (9)
  1. IMMUCYST [Suspect]
     Indication: BLADDER CANCER RECURRENT
     Route: 043
     Dates: start: 20050909, end: 20051031
  2. IMMUCYST [Suspect]
     Route: 043
     Dates: start: 20050909, end: 20051031
  3. LEVOFLOXACIN [Concomitant]
     Dates: start: 20050827, end: 20051121
  4. BIOLACTIS (LACTOBACILLUS CASEI) [Concomitant]
     Dates: start: 20050926
  5. NIFEDIPINE [Concomitant]
  6. VALSARTAN [Concomitant]
  7. ASPIRIN [Concomitant]
  8. TEPRENONE [Concomitant]
  9. TRIAZOLAM [Concomitant]

REACTIONS (7)
  - ARTHRALGIA [None]
  - BLOOD PRESSURE SYSTOLIC INCREASED [None]
  - CONJUNCTIVAL HYPERAEMIA [None]
  - CYSTITIS [None]
  - DYSURIA [None]
  - REITER'S SYNDROME [None]
  - TUBERCULOSIS [None]
